FAERS Safety Report 5972390-X (Version None)
Quarter: 2008Q4

REPORT INFORMATION
  Report Type: 
  Country: None (occurrence: None)
  Receive Date: 20081201
  Receipt Date: 20080108
  Transmission Date: 20090506
  Serious: No
  Sender: FDA-Public Use
  Company Number: US-AMGEN-KDL259720

PATIENT
  Sex: Female

DRUGS (2)
  1. ENBREL [Suspect]
     Indication: RHEUMATOID ARTHRITIS
     Route: 058
     Dates: start: 20070927
  2. METHOTREXATE [Concomitant]
     Route: 048
     Dates: start: 20061001

REACTIONS (8)
  - BODY TEMPERATURE INCREASED [None]
  - DECREASED APPETITE [None]
  - FATIGUE [None]
  - INJECTION SITE HAEMATOMA [None]
  - INJECTION SITE HAEMORRHAGE [None]
  - PAIN [None]
  - SWELLING [None]
  - WEIGHT DECREASED [None]
